FAERS Safety Report 8490620-X (Version None)
Quarter: 2012Q3

REPORT INFORMATION
  Report Type: 
  Country: None (occurrence: None)
  Receive Date: 20120705
  Receipt Date: 20120626
  Transmission Date: 20120928
  Serious: Yes (Other)
  Sender: FDA-Public Use
  Company Number: US-ABBOTT-12P-163-0950169-00

PATIENT
  Sex: Male
  Weight: 102.15 kg

DRUGS (8)
  1. NIASPAN [Suspect]
     Indication: BLOOD TRIGLYCERIDES INCREASED
     Dosage: AT NIGHT
     Dates: start: 20111001
  2. ASPIRIN [Concomitant]
     Indication: PRODUCT USED FOR UNKNOWN INDICATION
     Dosage: IN MORNING
  3. SPIRLACTONE [Concomitant]
     Indication: PRODUCT USED FOR UNKNOWN INDICATION
  4. METAPRIL [Concomitant]
     Indication: PRODUCT USED FOR UNKNOWN INDICATION
  5. PLAVIX [Concomitant]
     Indication: PRODUCT USED FOR UNKNOWN INDICATION
  6. BENACOR [Concomitant]
     Indication: PRODUCT USED FOR UNKNOWN INDICATION
  7. LIPITOR [Concomitant]
     Indication: PRODUCT USED FOR UNKNOWN INDICATION
  8. PROTONIX [Concomitant]
     Indication: PRODUCT USED FOR UNKNOWN INDICATION

REACTIONS (1)
  - CORONARY ARTERY OCCLUSION [None]
